FAERS Safety Report 8360853-1 (Version None)
Quarter: 2012Q2

REPORT INFORMATION
  Report Type: 
  Country: None (occurrence: None)
  Receive Date: 20120515
  Receipt Date: 20120509
  Transmission Date: 20120825
  Serious: Yes (Other)
  Sender: FDA-Public Use
  Company Number: CA-ABBOTT-12P-028-0933910-00

PATIENT
  Sex: Female

DRUGS (3)
  1. HUMIRA [Suspect]
     Route: 058
  2. HUMIRA [Suspect]
     Indication: CROHN'S DISEASE
     Route: 058
     Dates: start: 20100318
  3. HUMIRA [Suspect]
     Route: 058
     Dates: start: 20120201

REACTIONS (5)
  - INTESTINAL OBSTRUCTION [None]
  - ARTHRALGIA [None]
  - PSORIASIS [None]
  - PAIN [None]
  - SMALL INTESTINAL STENOSIS [None]
